FAERS Safety Report 25245828 (Version 2)
Quarter: 2025Q3

REPORT INFORMATION
  Report Type: Report from Study
  Country: JP (occurrence: JP)
  Receive Date: 20250428
  Receipt Date: 20250905
  Transmission Date: 20251020
  Serious: Yes (Death)
  Sender: SHIONOGI
  Company Number: JP-shionogi-202500004422

PATIENT
  Age: 60 Year
  Sex: Male
  Weight: 75.3 kg

DRUGS (11)
  1. CEFIDEROCOL [Suspect]
     Active Substance: CEFIDEROCOL
     Indication: Device related infection
     Route: 041
     Dates: start: 20240126, end: 20240130
  2. CEFIDEROCOL [Suspect]
     Active Substance: CEFIDEROCOL
     Route: 041
     Dates: start: 20240130, end: 20240202
  3. CEFIDEROCOL [Suspect]
     Active Substance: CEFIDEROCOL
     Route: 041
     Dates: start: 20240203, end: 20240205
  4. CEFIDEROCOL [Suspect]
     Active Substance: CEFIDEROCOL
     Route: 041
     Dates: start: 20240206, end: 20240209
  5. CEFIDEROCOL [Suspect]
     Active Substance: CEFIDEROCOL
     Route: 041
     Dates: start: 20240215, end: 20240224
  6. MEROPENEM [Concomitant]
     Active Substance: MEROPENEM
     Indication: Device related infection
     Route: 065
     Dates: end: 20240202
  7. LEVOFLOXACIN HEMIHYDRATE [Concomitant]
     Active Substance: LEVOFLOXACIN
     Indication: Device related infection
     Route: 065
     Dates: start: 20240113, end: 20240121
  8. MINOCYCLINE HYDROCHLORIDE [Concomitant]
     Active Substance: MINOCYCLINE HYDROCHLORIDE
     Indication: Device related infection
     Route: 065
     Dates: start: 20240118, end: 20240223
  9. VANCOMYCIN [Concomitant]
     Active Substance: VANCOMYCIN
     Indication: Device related infection
     Route: 065
     Dates: start: 20240118, end: 20240209
  10. ACOALAN [Concomitant]
     Indication: Product used for unknown indication
     Route: 065
     Dates: start: 20240125, end: 20240127
  11. THROMBOMODULIN ALFA [Concomitant]
     Active Substance: THROMBOMODULIN ALFA
     Indication: Product used for unknown indication
     Route: 065
     Dates: start: 20240126, end: 20240223

REACTIONS (2)
  - Device related infection [Fatal]
  - Septic shock [Fatal]

NARRATIVE: CASE EVENT DATE: 20240224
